FAERS Safety Report 10654576 (Version 1)
Quarter: 2014Q4

REPORT INFORMATION
  Report Type: Spontaneous
  Country: US (occurrence: US)
  Receive Date: 20141216
  Receipt Date: 20141216
  Transmission Date: 20150529
  Serious: No
  Sender: FDA-Public Use
  Company Number: US-009507513-1410USA015978

PATIENT
  Age: 6 Year
  Sex: Female
  Weight: 21.32 kg

DRUGS (1)
  1. COPPERTONE ULTRAGUARD SPF 50 [Suspect]
     Active Substance: AVOBENZONE\DIHYDROXYACETONE\DIMETHICONE COPOLYOL\HEXYL LAURATE\HOMOSALATE\OCTISALATE\OCTOCRYLENE\OXYBENZONE\PROPYLENE GLYCOL
     Indication: PROPHYLAXIS AGAINST SOLAR RADIATION
     Dosage: UNK, UNKNOWN
     Route: 061
     Dates: start: 20140713

REACTIONS (5)
  - Erythema [Not Recovered/Not Resolved]
  - Drug ineffective [Unknown]
  - Pruritus [Not Recovered/Not Resolved]
  - Rash [Recovered/Resolved]
  - Sunburn [Recovered/Resolved]

NARRATIVE: CASE EVENT DATE: 20140713
